FAERS Safety Report 21174074 (Version 1)
Quarter: 2022Q3

REPORT INFORMATION
  Report Type: Spontaneous
  Country: US (occurrence: US)
  Receive Date: 20220804
  Receipt Date: 20220804
  Transmission Date: 20221027
  Serious: No
  Sender: FDA-Public Use
  Company Number: US-ABBVIE-21K-163-4171891-00

PATIENT
  Sex: Female
  Weight: 68.04 kg

DRUGS (3)
  1. DEPAKOTE [Suspect]
     Active Substance: DIVALPROEX SODIUM
     Indication: Product used for unknown indication
     Route: 065
     Dates: start: 202109
  2. LORAZEPAM [Suspect]
     Active Substance: LORAZEPAM
     Indication: Product used for unknown indication
     Route: 065
  3. PFIZER-BIONTECH COVID-19 VACCINE [Suspect]
     Active Substance: TOZINAMERAN
     Indication: COVID-19 immunisation
     Route: 030
     Dates: start: 20211105, end: 20211105

REACTIONS (13)
  - Anxiety [Unknown]
  - Panic attack [Unknown]
  - Pain in extremity [Unknown]
  - Pyrexia [Unknown]
  - COVID-19 [Unknown]
  - Drug ineffective [Unknown]
  - Dysphemia [Unknown]
  - Disturbance in attention [Unknown]
  - Therapeutic product effect decreased [Unknown]
  - Mental impairment [Unknown]
  - Feeling abnormal [Unknown]
  - Vertigo [Unknown]
  - Dizziness [Unknown]

NARRATIVE: CASE EVENT DATE: 20210101
